FAERS Safety Report 13577963 (Version 1)
Quarter: 2017Q2

REPORT INFORMATION
  Report Type: Report from Study
  Country: KR (occurrence: KR)
  Receive Date: 20170524
  Receipt Date: 20170524
  Transmission Date: 20170830
  Serious: No
  Sender: FDA-Public Use
  Company Number: KR-B.I. PHARMACEUTICALS,INC./RIDGEFIELD-2017-BI-027801

PATIENT
  Age: 64 Year
  Sex: Female

DRUGS (7)
  1. DICAMAX D [Concomitant]
     Indication: FRACTURE
     Dosage: 100/1000 MG/IU
     Route: 048
     Dates: start: 20160705
  2. AMOSARTAN [Concomitant]
     Indication: HYPERTENSION
     Dosage: 5/100 MG
     Route: 048
     Dates: start: 20141023
  3. MUCOSTA [Concomitant]
     Active Substance: REBAMIPIDE
     Indication: PROPHYLAXIS
     Route: 048
     Dates: start: 20170330
  4. JARDIANCE [Suspect]
     Active Substance: EMPAGLIFLOZIN
     Indication: TYPE 2 DIABETES MELLITUS
     Route: 048
     Dates: start: 20170426, end: 20170513
  5. ESOMEZOL [Concomitant]
     Indication: PROPHYLAXIS
     Route: 048
     Dates: start: 20140919
  6. MOTILITONE [Concomitant]
     Active Substance: HERBALS
     Indication: PROPHYLAXIS
     Route: 048
     Dates: start: 20170330
  7. DIABEX [Concomitant]
     Active Substance: METFORMIN HYDROCHLORIDE
     Indication: TYPE 2 DIABETES MELLITUS
     Route: 048
     Dates: start: 20170426

REACTIONS (1)
  - Vulvovaginitis [Recovered/Resolved]

NARRATIVE: CASE EVENT DATE: 20170503
